FAERS Safety Report 21912842 (Version 1)
Quarter: 2023Q1

REPORT INFORMATION
  Report Type: Spontaneous
  Country: US (occurrence: US)
  Receive Date: 20230125
  Receipt Date: 20230125
  Transmission Date: 20230418
  Serious: No
  Sender: FDA-Public Use
  Company Number: US-ALLERGAN-2223066US

PATIENT

DRUGS (2)
  1. BOTOX COSMETIC [Suspect]
     Active Substance: ONABOTULINUMTOXINA
     Indication: Muscle twitching
     Dosage: UNK, SINGLE
  2. BOTOX COSMETIC [Suspect]
     Active Substance: ONABOTULINUMTOXINA
     Indication: Skin wrinkling
     Dosage: UNK, SINGLE

REACTIONS (5)
  - Pain [Unknown]
  - Hypoaesthesia oral [Unknown]
  - Eye contusion [Unknown]
  - Contusion [Unknown]
  - Facial paresis [Unknown]

NARRATIVE: CASE EVENT DATE: 20220301
